FAERS Safety Report 14348418 (Version 3)
Quarter: 2018Q1

REPORT INFORMATION
  Report Type: Spontaneous
  Country: US (occurrence: US)
  Receive Date: 20180103
  Receipt Date: 20180322
  Transmission Date: 20180509
  Serious: Yes (Hospitalization)
  Sender: FDA-Public Use
  Company Number: US-VIFOR (INTERNATIONAL) INC.-VIT-2017-14106

PATIENT
  Age: 57 Year
  Sex: Male
  Weight: 70.82 kg

DRUGS (2)
  1. VELTASSA [Suspect]
     Active Substance: PATIROMER
     Indication: BLOOD POTASSIUM DECREASED
     Route: 048
  2. VELTASSA [Suspect]
     Active Substance: PATIROMER
     Route: 048

REACTIONS (9)
  - Hyperkalaemia [Unknown]
  - Blood pressure abnormal [Recovered/Resolved]
  - Drug dose omission [Unknown]
  - Anaemia [Unknown]
  - Blood glucose decreased [Recovered/Resolved]
  - Product colour issue [Unknown]
  - Heart rate decreased [Recovered/Resolved]
  - Clostridium difficile infection [Unknown]
  - Diarrhoea [Unknown]

NARRATIVE: CASE EVENT DATE: 20180207
